FAERS Safety Report 26184521 (Version 1)
Quarter: 2025Q4

REPORT INFORMATION
  Report Type: Spontaneous
  Country: EU (occurrence: EU)
  Receive Date: 20251222
  Receipt Date: 20251222
  Transmission Date: 20260117
  Serious: Yes (Other)
  Sender: TEVA
  Company Number: None

PATIENT
  Age: 46 Year
  Sex: Female
  Weight: 74 kg

DRUGS (1)
  1. CLOPIDOGREL [Suspect]
     Active Substance: CLOPIDOGREL BISULFATE
     Indication: Transient ischaemic attack
     Dosage: 1 PIECE ONCE A DAY, CLOPIDOGREL TABLET   75MG / BRAND NAME NOT SPECIFIED
     Route: 048
     Dates: start: 20250321

REACTIONS (3)
  - Deafness [Not Recovered/Not Resolved]
  - Headache [Recovering/Resolving]
  - Tinnitus [Not Recovered/Not Resolved]
